FAERS Safety Report 12224430 (Version 5)
Quarter: 2016Q4

REPORT INFORMATION
  Report Type: Report from Study
  Country: US (occurrence: US)
  Receive Date: 20160331
  Receipt Date: 20161020
  Transmission Date: 20170207
  Serious: Yes (Death, Hospitalization)
  Sender: FDA-Public Use
  Company Number: US-BEH-2016060468

PATIENT
  Age: 28 Year
  Sex: Female

DRUGS (2)
  1. PRIVIGEN [Suspect]
     Active Substance: HUMAN IMMUNOGLOBULIN G
     Indication: SYSTEMIC SCLERODERMA
     Dosage: 10% PRIVIGEN
     Route: 065
     Dates: start: 20160315, end: 20160318
  2. PRIVIGEN [Suspect]
     Active Substance: HUMAN IMMUNOGLOBULIN G
     Dosage: PERMANENT DISCONITNUATION ON 18-MAR-2016 (10 % PRIVIGEN)
     Route: 042
     Dates: start: 20160317, end: 20160318

REACTIONS (4)
  - Myositis [Recovering/Resolving]
  - Muscular weakness [Recovering/Resolving]
  - Cardiac arrest [Fatal]
  - Dyspnoea [Fatal]

NARRATIVE: CASE EVENT DATE: 20160318
